FAERS Safety Report 7729938-4 (Version None)
Quarter: 2011Q3

REPORT INFORMATION
  Report Type: 
  Country: None (occurrence: None)
  Receive Date: 20110906
  Receipt Date: 20110822
  Transmission Date: 20111222
  Serious: Yes (Other)
  Sender: FDA-Public Use
  Company Number: PHHY2011DE41043

PATIENT
  Sex: Female
  Weight: 66 kg

DRUGS (4)
  1. ANALGESICS [Concomitant]
     Dosage: UNK
  2. NSAID'S [Concomitant]
  3. VITAMIN D [Concomitant]
     Indication: OSTEOPOROSIS
     Dosage: 1000 IU, QD
  4. ZOLEDRONOC ACID [Suspect]
     Indication: OSTEOPOROSIS
     Dosage: 5 MG, ONCE YEARLY
     Route: 042
     Dates: start: 20100517, end: 20100517

REACTIONS (5)
  - PAIN [None]
  - SPINAL DEFORMITY [None]
  - BACK PAIN [None]
  - MOBILITY DECREASED [None]
  - DRUG INEFFECTIVE [None]
